FAERS Safety Report 9437244 (Version 3)
Quarter: 2013Q4

REPORT INFORMATION
  Report Type: Spontaneous
  Country: GB (occurrence: GB)
  Receive Date: 20130802
  Receipt Date: 20131118
  Transmission Date: 20140711
  Serious: Yes (Other)
  Sender: FDA-Public Use
  Company Number: PHFR2013GB004379

PATIENT
  Age: 58 Year
  Sex: Male

DRUGS (2)
  1. CLOZARIL [Suspect]
     Indication: SCHIZOPHRENIA
     Dosage: UNK
     Route: 048
     Dates: start: 20121221
  2. SERTRALINE [Concomitant]
     Dosage: UNK

REACTIONS (3)
  - Throat cancer [Not Recovered/Not Resolved]
  - Prostate cancer [Not Recovered/Not Resolved]
  - Neutrophil count increased [Unknown]
